FAERS Safety Report 9283668 (Version 2)
Quarter: 2014Q2

REPORT INFORMATION
  Report Type: Spontaneous
  Country: US (occurrence: US)
  Receive Date: 20130510
  Receipt Date: 20140408
  Transmission Date: 20141212
  Serious: Yes (Hospitalization)
  Sender: FDA-Public Use
  Company Number: US-GLAXOSMITHKLINE-A1001922A

PATIENT
  Age: 64 Year
  Sex: Male

DRUGS (1)
  1. AVANDIA [Suspect]
     Indication: DIABETES MELLITUS
     Dosage: 4MG PER DAY
     Route: 048
     Dates: start: 200002, end: 200201

REACTIONS (4)
  - Chest pain [Not Recovered/Not Resolved]
  - Cardiac operation [Unknown]
  - Weight increased [Unknown]
  - Dyspnoea [Unknown]
